FAERS Safety Report 7531054-1 (Version None)
Quarter: 2011Q2

REPORT INFORMATION
  Report Type: 
  Country: None (occurrence: None)
  Receive Date: 20110608
  Receipt Date: 20110601
  Transmission Date: 20111010
  Serious: Yes (Death, Hospitalization)
  Sender: FDA-Public Use
  Company Number: SE-JNJFOC-20110600068

PATIENT
  Sex: Male

DRUGS (2)
  1. CONCERTA [Suspect]
     Dosage: STARTED ABOUT 5 WEEKS AGO
     Route: 048
  2. CONCERTA [Suspect]
     Indication: ATTENTION DEFICIT/HYPERACTIVITY DISORDER
     Route: 048

REACTIONS (3)
  - MYOCARDIAL INFARCTION [None]
  - INFLUENZA [None]
  - DEATH [None]
